FAERS Safety Report 17550223 (Version 1)
Quarter: 2020Q1

REPORT INFORMATION
  Report Type: Spontaneous
  Country: AT (occurrence: AT)
  Receive Date: 20200317
  Receipt Date: 20200317
  Transmission Date: 20200409
  Serious: Yes (Hospitalization, Other)
  Sender: FDA-Public Use
  Company Number: NVSC2019AT061716

PATIENT
  Age: 26 Year
  Sex: Male

DRUGS (8)
  1. LORAZEPAM. [Interacting]
     Active Substance: LORAZEPAM
     Dosage: 7.5 MG, QD
     Route: 065
  2. VALPROATE ACID [Suspect]
     Active Substance: VALPROATE SODIUM
     Indication: MANIA
     Dosage: 500 MG, QID
     Route: 065
  3. VALPROATE ACID [Interacting]
     Active Substance: VALPROATE SODIUM
     Dosage: 2500 MG, QID
     Route: 065
  4. VALPROATE ACID [Interacting]
     Active Substance: VALPROATE SODIUM
     Dosage: 1200 MG, QD
     Route: 065
  5. RISPERIDONE. [Interacting]
     Active Substance: RISPERIDONE
     Dosage: 7.5 MG, QD
     Route: 048
  6. RISPERIDONE. [Interacting]
     Active Substance: RISPERIDONE
     Dosage: 1 MG, QD
     Route: 048
  7. LORAZEPAM. [Interacting]
     Active Substance: LORAZEPAM
     Indication: MANIA
     Dosage: 2.5 MG, QD
     Route: 065
  8. RISPERIDONE. [Interacting]
     Active Substance: RISPERIDONE
     Indication: MANIA
     Dosage: 6 MG, QD
     Route: 048

REACTIONS (10)
  - Psychomotor retardation [Unknown]
  - Hyperammonaemia [Unknown]
  - Encephalopathy [Unknown]
  - Depressed level of consciousness [Unknown]
  - Hyperammonaemic encephalopathy [Recovered/Resolved]
  - Agitation [Unknown]
  - Drug interaction [Recovered/Resolved]
  - Sedation [Unknown]
  - Electroencephalogram abnormal [Unknown]
  - Irritability [Unknown]
